FAERS Safety Report 15266872 (Version 1)
Quarter: 2018Q3

REPORT INFORMATION
  Report Type: Report from Study
  Country: None (occurrence: RO)
  Receive Date: 20180810
  Receipt Date: 20180810
  Transmission Date: 20181010
  Serious: Yes (Hospitalization)
  Sender: FDA-Public Use
  Company Number: RO-ABBVIE-18K-135-2447307-00

PATIENT
  Age: 30 Year
  Sex: Male

DRUGS (5)
  1. SPASMOMEN [Concomitant]
     Active Substance: OTILONIUM BROMIDE
     Indication: CROHN^S DISEASE
     Route: 048
  2. OMEGA 3 [Concomitant]
     Active Substance: OMEGA-3 FATTY ACIDS
     Indication: CROHN^S DISEASE
     Route: 048
  3. PROBIOTIC [Concomitant]
     Active Substance: PROBIOTICS NOS
     Indication: CROHN^S DISEASE
     Route: 048
  4. DEBRIDAT [Concomitant]
     Active Substance: TRIMEBUTINE MALEATE
     Indication: CROHN^S DISEASE
     Route: 048
  5. HUMIRA [Suspect]
     Active Substance: ADALIMUMAB
     Indication: CROHN^S DISEASE
     Route: 058
     Dates: start: 20140615

REACTIONS (3)
  - Intestinal obstruction [Recovered/Resolved]
  - Intentional product misuse [Recovered/Resolved]
  - Intestinal strangulation [Recovered/Resolved]

NARRATIVE: CASE EVENT DATE: 201712
